FAERS Safety Report 7388396-2 (Version None)
Quarter: 2011Q2

REPORT INFORMATION
  Report Type: 
  Country: None (occurrence: None)
  Receive Date: 20110401
  Receipt Date: 20110322
  Transmission Date: 20111010
  Serious: Yes (Other)
  Sender: FDA-Public Use
  Company Number: CA-US-EMD SERONO, INC.-7029992

PATIENT
  Sex: Female

DRUGS (8)
  1. VITAMIN D [Concomitant]
  2. TRAZODONE HCL [Concomitant]
  3. REBIF [Suspect]
     Indication: RELAPSING-REMITTING MULTIPLE SCLEROSIS
     Dates: start: 20101123, end: 20110222
  4. SANDOZ-ORPHENADRINE [Concomitant]
  5. MULTIVITAMINS + MULTIMINERALS [Concomitant]
  6. DOXYTAB [Concomitant]
  7. PENTA 3B +C [Concomitant]
  8. CI-CAL D 400 [Concomitant]

REACTIONS (7)
  - CHOLELITHIASIS [None]
  - OROPHARYNGEAL PAIN [None]
  - PAIN [None]
  - PYREXIA [None]
  - BLOOD TEST ABNORMAL [None]
  - NASOPHARYNGITIS [None]
  - INAPPROPRIATE SCHEDULE OF DRUG ADMINISTRATION [None]
